FAERS Safety Report 4317485-1 (Version None)
Quarter: 2004Q1

REPORT INFORMATION
  Report Type: 
  Country: None (occurrence: None)
  Receive Date: 20040312
  Receipt Date: 20040305
  Transmission Date: 20041129
  Serious: No
  Sender: FDA-Public Use
  Company Number: 2004UW04222

PATIENT

DRUGS (4)
  1. SEROQUEL [Suspect]
  2. CLOZAPINE [Suspect]
  3. MOTRIN [Concomitant]
  4. VISTARIL [Concomitant]

REACTIONS (1)
  - AGRANULOCYTOSIS [None]
